FAERS Safety Report 12316807 (Version 1)
Quarter: 2016Q2

REPORT INFORMATION
  Report Type: Spontaneous
  Country: US (occurrence: US)
  Receive Date: 20160429
  Receipt Date: 20160429
  Transmission Date: 20160815
  Serious: No
  Sender: FDA-Public Use
  Company Number: US-009507513-1604USA002631

PATIENT
  Sex: Female
  Weight: 68.4 kg

DRUGS (7)
  1. MAXALT [Suspect]
     Active Substance: RIZATRIPTAN BENZOATE
     Indication: HEADACHE
     Dosage: 10 MG, PRN
     Route: 048
     Dates: start: 201602
  2. ALBUTEROL. [Concomitant]
     Active Substance: ALBUTEROL
     Indication: ASTHMA
     Dosage: UNK, PRN
  3. LYRICA [Suspect]
     Active Substance: PREGABALIN
     Dosage: UNK, BID
     Route: 048
  4. PRILOSEC [Suspect]
     Active Substance: OMEPRAZOLE MAGNESIUM
     Indication: DYSPEPSIA
     Dosage: 20 MG, ONCE A DAY
     Route: 048
  5. LYRICA [Suspect]
     Active Substance: PREGABALIN
     Indication: FIBROMYALGIA
     Dosage: 300 MG 1 CAPSULE, UNK
     Route: 048
     Dates: start: 201508
  6. LYRICA [Suspect]
     Active Substance: PREGABALIN
     Dosage: UNK, QD
     Route: 048
  7. VERAPAMIL [Suspect]
     Active Substance: VERAPAMIL HYDROCHLORIDE
     Indication: HEADACHE
     Dosage: 200 MG, QD
     Route: 048
     Dates: start: 201602

REACTIONS (3)
  - Feeling abnormal [Unknown]
  - Muscle spasms [Not Recovered/Not Resolved]
  - Dry eye [Not Recovered/Not Resolved]

NARRATIVE: CASE EVENT DATE: 2016
